FAERS Safety Report 16955616 (Version 4)
Quarter: 2023Q1

REPORT INFORMATION
  Report Type: Spontaneous
  Country: US (occurrence: US)
  Receive Date: 20191024
  Receipt Date: 20230328
  Transmission Date: 20230417
  Serious: No
  Sender: FDA-Public Use
  Company Number: US-PFIZER INC-2019458555

PATIENT
  Age: 63 Year
  Sex: Female

DRUGS (1)
  1. XELJANZ XR [Suspect]
     Active Substance: TOFACITINIB CITRATE
     Dosage: 11 MG, UNK

REACTIONS (5)
  - Herpes zoster [Unknown]
  - Pain [Unknown]
  - Disturbance in attention [Unknown]
  - Hypersensitivity [Unknown]
  - Illness [Unknown]

NARRATIVE: CASE EVENT DATE: 20220325
